FAERS Safety Report 5141350-3 (Version None)
Quarter: 2006Q4

REPORT INFORMATION
  Report Type: 
  Country: None (occurrence: None)
  Receive Date: 20061101
  Receipt Date: 20061024
  Transmission Date: 20070319
  Serious: Yes (Other)
  Sender: FDA-Public Use
  Company Number: BR-ROCHE-468823

PATIENT
  Age: 30 Year
  Sex: Female

DRUGS (2)
  1. ROACUTAN [Suspect]
     Route: 048
     Dates: start: 20061009, end: 20061023
  2. CONTRACEPTIVE DRUG NOS [Concomitant]
     Indication: CONTRACEPTION
     Route: 048

REACTIONS (3)
  - DRUG EXPOSURE DURING PREGNANCY [None]
  - NO ADVERSE EFFECT [None]
  - PREGNANCY [None]
